FAERS Safety Report 11619590 (Version 2)
Quarter: 2015Q4

REPORT INFORMATION
  Report Type: Spontaneous
  Country: JP (occurrence: JP)
  Receive Date: 20151012
  Receipt Date: 20151224
  Transmission Date: 20160304
  Serious: Yes (Death, Other)
  Sender: FDA-Public Use
  Company Number: JP-ROCHE-1642964

PATIENT
  Age: 36 Year
  Sex: Female
  Weight: 46 kg

DRUGS (1)
  1. ACTEMRA [Suspect]
     Active Substance: TOCILIZUMAB
     Indication: RHEUMATOID ARTHRITIS
     Dosage: DOSAGE WAS UNCERTAIN.
     Route: 058
     Dates: start: 20150820, end: 20150820

REACTIONS (16)
  - Histiocytosis haematophagic [Fatal]
  - Multi-organ failure [Fatal]
  - Hepatic function abnormal [Recovering/Resolving]
  - Pancytopenia [Unknown]
  - Blood lactate dehydrogenase increased [Unknown]
  - Pyrexia [Unknown]
  - Pneumonia necrotising [Unknown]
  - Tumour lysis syndrome [Unknown]
  - Hypofibrinogenaemia [Unknown]
  - Acidosis [Unknown]
  - Disseminated intravascular coagulation [Fatal]
  - Hypertriglyceridaemia [Unknown]
  - Serum ferritin increased [Unknown]
  - Prerenal failure [Unknown]
  - Sepsis [Unknown]
  - Hyperuricaemia [Unknown]

NARRATIVE: CASE EVENT DATE: 201509
